FAERS Safety Report 23568176 (Version 1)
Quarter: 2024Q1

REPORT INFORMATION
  Report Type: Spontaneous
  Country: KR (occurrence: KR)
  Receive Date: 20240226
  Receipt Date: 20240226
  Transmission Date: 20240410
  Serious: No
  Sender: FDA-Public Use
  Company Number: KR-WW-2024-APC-006621

PATIENT
  Sex: Male

DRUGS (1)
  1. AVODART [Suspect]
     Active Substance: DUTASTERIDE
     Indication: Prostatic disorder
     Route: 065

REACTIONS (3)
  - Libido disorder [Unknown]
  - Brain fog [Unknown]
  - Feeling abnormal [Unknown]
